FAERS Safety Report 9632586 (Version 3)
Quarter: 2013Q4

REPORT INFORMATION
  Report Type: Spontaneous
  Country: JP (occurrence: JP)
  Receive Date: 20131018
  Receipt Date: 20131112
  Transmission Date: 20140711
  Serious: Yes (Other)
  Sender: FDA-Public Use
  Company Number: JP-TEVA-437944ISR

PATIENT
  Age: 67 Year
  Sex: Male
  Weight: 62 kg

DRUGS (9)
  1. CISPLATIN [Suspect]
     Indication: SMALL CELL LUNG CANCER
     Dosage: 60 MG/M2 ON DAY 1
     Route: 065
  2. FLUVOXAMINE [Suspect]
     Indication: DEPRESSION
     Dosage: 150 MG/DAY
     Route: 065
  3. LEVOTHYROXINE SODIUM [Concomitant]
     Indication: HYPOTHYROIDISM
     Dosage: 200 MICROG/DAY
     Route: 065
  4. CLOPIDOGREL [Concomitant]
     Indication: ANTIPLATELET THERAPY
     Dosage: 75 MG/DAY
     Route: 065
  5. CANDESARTAN CILEXETIL [Concomitant]
     Dosage: 4 MG/DAY
     Route: 065
  6. OXYCODONE [Concomitant]
     Indication: PAIN
     Dosage: 10MG
     Route: 065
  7. CARBOPLATIN [Concomitant]
     Indication: SMALL CELL LUNG CANCER
     Dosage: AUC = 5 ON DAY 1
     Route: 050
  8. ETOPOSIDE [Concomitant]
     Indication: SMALL CELL LUNG CANCER
     Dosage: 80 MG/M2 ON DAYS 1-3
     Route: 065
  9. IRINOTECAN [Concomitant]
     Indication: SMALL CELL LUNG CANCER
     Dosage: 60 MG/M2 ON DAYS 1 AND 8
     Route: 065

REACTIONS (1)
  - Serotonin syndrome [Recovering/Resolving]
